FAERS Safety Report 6261165-2 (Version None)
Quarter: 2009Q3

REPORT INFORMATION
  Report Type: 
  Country: None (occurrence: None)
  Receive Date: 20090709
  Receipt Date: 20080618
  Transmission Date: 20100115
  Serious: No
  Sender: FDA-Public Use
  Company Number: US-KINGPHARMUSA00001-K200800725

PATIENT
  Age: 44 Year
  Sex: Male
  Weight: 79.365 kg

DRUGS (4)
  1. LEVOXYL [Suspect]
     Indication: AUTOIMMUNE THYROIDITIS
     Dosage: 37.5 MCG, QD
     Route: 048
     Dates: start: 20080201, end: 20080301
  2. LEVOXYL [Suspect]
     Dosage: 50 MCG, QD
     Route: 048
     Dates: start: 20080301
  3. AMBIEN [Concomitant]
     Indication: INSOMNIA
     Dosage: UNK, QHS
     Route: 048
  4. SELENIUM [Concomitant]
     Indication: AUTOIMMUNE THYROIDITIS
     Dosage: UNK, PRN
     Route: 048

REACTIONS (2)
  - PAIN [None]
  - PAIN IN EXTREMITY [None]
